FAERS Safety Report 16533975 (Version 1)
Quarter: 2019Q3

REPORT INFORMATION
  Report Type: Spontaneous
  Country: US (occurrence: US)
  Receive Date: 20190704
  Receipt Date: 20190704
  Transmission Date: 20191004
  Serious: Yes (Other)
  Sender: FDA-Public Use
  Company Number: US-009507513-1907USA000617

PATIENT
  Age: 25 Year
  Sex: Male

DRUGS (3)
  1. REMERON [Suspect]
     Active Substance: MIRTAZAPINE
     Indication: MENTAL DISORDER
     Dosage: 30 MILLIGRAM, PER NIGHT
     Route: 048
  2. FENTANYL. [Suspect]
     Active Substance: FENTANYL
     Dosage: 100 MICROGRAM, PER HOUR
     Route: 042
  3. FLUOXETINE [Suspect]
     Active Substance: FLUOXETINE HYDROCHLORIDE
     Indication: MENTAL DISORDER
     Dosage: 20 MILLIGRAM, QD

REACTIONS (1)
  - Serotonin syndrome [Recovered/Resolved]
